FAERS Safety Report 7829693-3 (Version None)
Quarter: 2011Q4

REPORT INFORMATION
  Report Type: 
  Country: None (occurrence: None)
  Receive Date: 20111018
  Receipt Date: 20111005
  Transmission Date: 20120403
  Serious: Yes (Hospitalization)
  Sender: FDA-Public Use
  Company Number: US-2011-2556

PATIENT
  Age: 63 Year
  Sex: Male
  Weight: 108 kg

DRUGS (8)
  1. CISPLATIN [Suspect]
     Indication: NON-SMALL CELL LUNG CANCER STAGE III
     Dosage: 75 MG/M2 IV
     Route: 042
     Dates: start: 20110509
  2. RADIATION [Suspect]
     Indication: NON-SMALL CELL LUNG CANCER STAGE III
     Dates: start: 20110228, end: 20110429
  3. FENTANYL-100 [Concomitant]
  4. VINORELBINE [Suspect]
     Indication: NON-SMALL CELL LUNG CANCER STAGE II
     Dosage: 30 MG/M2 IV
     Route: 042
     Dates: start: 20110509
  5. CISPLATIN [Suspect]
     Indication: NON-SMALL CELL LUNG CANCER STAGE II
     Dosage: 50 MG/M2 IV
     Route: 042
     Dates: start: 20110228, end: 20110404
  6. ETOPOSIDE [Suspect]
     Indication: NON-SMALL CELL LUNG CANCER STAGE II
     Dosage: 50 MG/M2 IV
     Route: 042
     Dates: start: 20110228, end: 20110429
  7. PREDNISOLONE ACETATE [Concomitant]
  8. BENZONATATE [Concomitant]

REACTIONS (12)
  - PNEUMONITIS CHEMICAL [None]
  - DYSPNOEA [None]
  - MYCOBACTERIAL INFECTION [None]
  - VIRAL INFECTION [None]
  - HAEMOGLOBIN DECREASED [None]
  - BACTERIAL INFECTION [None]
  - FUNGAL INFECTION [None]
  - HAEMATOCRIT DECREASED [None]
  - PYREXIA [None]
  - CONDITION AGGRAVATED [None]
  - HYPOXIA [None]
  - RADIATION PNEUMONITIS [None]
